FAERS Safety Report 9092261 (Version 1)
Quarter: 2013Q1

REPORT INFORMATION
  Report Type: Report from Study
  Country: US (occurrence: US)
  Receive Date: 20130218
  Receipt Date: 20130218
  Transmission Date: 20140127
  Serious: No
  Sender: FDA-Public Use
  Company Number: US-ABBOTT-12P-163-1001821-00

PATIENT
  Sex: Male
  Weight: 127.12 kg

DRUGS (3)
  1. SIMCOR 1000MG/40MG [Suspect]
     Indication: BLOOD CHOLESTEROL INCREASED
     Route: 048
  2. ALLOPURINOL [Concomitant]
     Indication: PRODUCT USED FOR UNKNOWN INDICATION
     Dosage: 100 MG DAILY
     Route: 048
  3. ASPIRIN [Concomitant]
     Indication: PRODUCT USED FOR UNKNOWN INDICATION
     Dosage: 81 MG DAILY
     Route: 048

REACTIONS (1)
  - Flushing [Not Recovered/Not Resolved]
